FAERS Safety Report 13589271 (Version 1)
Quarter: 2017Q2

REPORT INFORMATION
  Report Type: Report from Study
  Country: US (occurrence: US)
  Receive Date: 20170529
  Receipt Date: 20170529
  Transmission Date: 20170830
  Serious: Yes (Hospitalization)
  Sender: FDA-Public Use
  Company Number: US-ROCHE-1939275

PATIENT
  Sex: Female

DRUGS (2)
  1. LENALIDOMIDE [Suspect]
     Active Substance: LENALIDOMIDE
     Indication: NON-HODGKIN^S LYMPHOMA UNSPECIFIED HISTOLOGY INDOLENT
     Dosage: STARTING DOSE OF 10 MG TAKEN ORALLY IN THE MORNING EACH DAY ON DAYS 2 - 22, FOLLOWED BY 6 DAYS OF NO
     Route: 048
  2. OBINUTUZUMAB [Suspect]
     Active Substance: OBINUTUZUMAB
     Indication: NON-HODGKIN^S LYMPHOMA UNSPECIFIED HISTOLOGY INDOLENT
     Dosage: ON DAY 1, 2, 8, AND 15 OF CYCLE ONE AND ON DAY 1 OF EACH SUBSEQUENT CYCLE UP TO 6 CYCLES. OBINUTUZUM
     Route: 042

REACTIONS (1)
  - Vertigo [Unknown]

NARRATIVE: CASE EVENT DATE: 20170522
